FAERS Safety Report 4814638-0 (Version None)
Quarter: 2005Q4

REPORT INFORMATION
  Report Type: 
  Country: None (occurrence: None)
  Receive Date: 20051028
  Receipt Date: 20051013
  Transmission Date: 20060501
  Serious: Yes (Life-Threatening)
  Sender: FDA-Public Use
  Company Number: FR-GLAXOSMITHKLINE-B0397692A

PATIENT
  Age: 69 Year
  Sex: Male

DRUGS (4)
  1. TRACRIUM [Suspect]
     Route: 042
     Dates: start: 20050621, end: 20050621
  2. DIPRIVAN [Suspect]
     Route: 042
     Dates: start: 20050621, end: 20050621
  3. SUFENTA [Suspect]
     Route: 042
     Dates: start: 20050621, end: 20050621
  4. CEFAZOLIN SODIUM [Suspect]
     Route: 042
     Dates: start: 20050621, end: 20050621

REACTIONS (5)
  - ANAPHYLACTOID REACTION [None]
  - BRONCHOSPASM [None]
  - ERYTHEMA [None]
  - HYPOTENSION [None]
  - TACHYCARDIA [None]
